FAERS Safety Report 24052730 (Version 2)
Quarter: 2025Q1

REPORT INFORMATION
  Report Type: Spontaneous
  Country: US (occurrence: US)
  Receive Date: 20240705
  Receipt Date: 20250131
  Transmission Date: 20250409
  Serious: No
  Sender: LEO PHARM
  Company Number: US-LEO Pharma-371705

PATIENT
  Age: 73 Year
  Sex: Female

DRUGS (4)
  1. ADBRY [Suspect]
     Active Substance: TRALOKINUMAB-LDRM
     Indication: Eczema
     Dates: start: 20240417
  2. ADBRY [Suspect]
     Active Substance: TRALOKINUMAB-LDRM
     Indication: Eczema
     Dates: start: 20240627
  3. Lisinopril 20mg/Hydrochlorothiazide 12.5mg [Concomitant]
     Indication: Product used for unknown indication
  4. ALENDRONATE SODIUM [Concomitant]
     Active Substance: ALENDRONATE SODIUM
     Indication: Product used for unknown indication
     Dosage: 70MG ONCE A WEEK

REACTIONS (3)
  - Blister [Recovering/Resolving]
  - Dry skin [Unknown]
  - Skin fissures [Unknown]

NARRATIVE: CASE EVENT DATE: 20240630
